FAERS Safety Report 5607394-X (Version None)
Quarter: 2008Q1

REPORT INFORMATION
  Report Type: 
  Country: None (occurrence: None)
  Receive Date: 20080128
  Receipt Date: 20080128
  Transmission Date: 20080703
  Serious: Yes (Hospitalization)
  Sender: FDA-Public Use
  Company Number: None

PATIENT
  Sex: Female
  Weight: 42.1 kg

DRUGS (3)
  1. CISPLATIN [Suspect]
     Dosage: 101 MG
     Dates: end: 20080103
  2. NAVELBINE [Suspect]
     Dosage: 41 MG
     Dates: end: 20080110
  3. NAVELBINE [Suspect]
     Dosage: 41 MG
     Dates: start: 20080103

REACTIONS (2)
  - APPENDICITIS [None]
  - CONSTIPATION [None]
